FAERS Safety Report 13662900 (Version 2)
Quarter: 2017Q3

REPORT INFORMATION
  Report Type: Spontaneous
  Country: RU (occurrence: RU)
  Receive Date: 20170619
  Receipt Date: 20170722
  Transmission Date: 20171127
  Serious: No
  Sender: FDA-Public Use
  Company Number: RU-ROCHE-1951979

PATIENT
  Age: 44 Year
  Sex: Male

DRUGS (2)
  1. GAZYVA [Suspect]
     Active Substance: OBINUTUZUMAB
     Indication: B-CELL LYMPHOMA
     Dosage: 1000 MG ONCE PER 28 DAYS
     Route: 065
  2. HEPATOPROTECTORS (UNK INGREDIENTS) [Concomitant]

REACTIONS (2)
  - Thrombocytopenia [Unknown]
  - Off label use [Unknown]
